FAERS Safety Report 16713689 (Version 2)
Quarter: 2020Q1

REPORT INFORMATION
  Report Type: Spontaneous
  Country: US (occurrence: US)
  Receive Date: 20190819
  Receipt Date: 20200313
  Transmission Date: 20200409
  Serious: Yes (Hospitalization)
  Sender: FDA-Public Use
  Company Number: US-ROCHE-2378384

PATIENT
  Sex: Female

DRUGS (25)
  1. OCREVUS [Suspect]
     Active Substance: OCRELIZUMAB
     Route: 042
     Dates: start: 20200124
  2. TYLENOL [Concomitant]
     Active Substance: ACETAMINOPHEN
  3. AJOVY [Concomitant]
     Active Substance: FREMANEZUMAB-VFRM
  4. RIZATRIPTAN BENZOATE. [Concomitant]
     Active Substance: RIZATRIPTAN BENZOATE
  5. BACLOFEN. [Concomitant]
     Active Substance: BACLOFEN
  6. HYDROXYZINE HYDROCHLORIDE. [Concomitant]
     Active Substance: HYDROXYZINE HYDROCHLORIDE
  7. TRAMADOL HYDROCHLORIDE. [Concomitant]
     Active Substance: TRAMADOL HYDROCHLORIDE
  8. ONDANSETRON HYDROCHLORIDE. [Concomitant]
     Active Substance: ONDANSETRON HYDROCHLORIDE
  9. ACTHAR [Concomitant]
     Active Substance: CORTICOTROPIN
  10. TRAZODONE HYDROCHLORIDE. [Concomitant]
     Active Substance: TRAZODONE HYDROCHLORIDE
  11. OCREVUS [Suspect]
     Active Substance: OCRELIZUMAB
     Indication: MULTIPLE SCLEROSIS
     Route: 042
     Dates: start: 201907, end: 20190724
  12. ZOFRAN [Concomitant]
     Active Substance: ONDANSETRON HYDROCHLORIDE
  13. OMEPRAZOLE. [Concomitant]
     Active Substance: OMEPRAZOLE
  14. LEVOTHYROXINE SODIUM. [Concomitant]
     Active Substance: LEVOTHYROXINE SODIUM
  15. METHYLPREDNISOLONE. [Concomitant]
     Active Substance: METHYLPREDNISOLONE
  16. MEDROL [Concomitant]
     Active Substance: METHYLPREDNISOLONE
  17. CYCLOBENZAPRINE HCL [Concomitant]
     Active Substance: CYCLOBENZAPRINE HYDROCHLORIDE
  18. DEPAKOTE ER [Concomitant]
     Active Substance: DIVALPROEX SODIUM
  19. ACTHAR [Concomitant]
     Active Substance: CORTICOTROPIN
  20. TAMSULOSIN HYDROCHLORIDE. [Concomitant]
     Active Substance: TAMSULOSIN HYDROCHLORIDE
  21. VITAMINE D [Concomitant]
     Active Substance: CHOLECALCIFEROL
  22. DIPHENHYDRAMINE HCL [Concomitant]
     Active Substance: DIPHENHYDRAMINE HYDROCHLORIDE
  23. VITAMIN B12 [VITAMIN B12 NOS] [Concomitant]
     Active Substance: CYANOCOBALAMIN
  24. PREDNISONE. [Concomitant]
     Active Substance: PREDNISONE
  25. CARAFATE [Concomitant]
     Active Substance: SUCRALFATE

REACTIONS (2)
  - Head discomfort [Unknown]
  - Nausea [Unknown]
